FAERS Safety Report 9286475 (Version 1)
Quarter: 2013Q2

REPORT INFORMATION
  Report Type: Spontaneous
  Country: US (occurrence: None)
  Receive Date: 20130510
  Receipt Date: 20130510
  Transmission Date: 20140414
  Serious: Yes (Hospitalization)
  Sender: FDA-Public Use
  Company Number: None

PATIENT
  Age: 80 Year
  Sex: Male
  Weight: 68.9 kg

DRUGS (16)
  1. COUMADIN [Suspect]
     Indication: DEEP VEIN THROMBOSIS
     Route: 048
  2. ASA [Suspect]
     Route: 048
  3. APAP [Concomitant]
  4. VIT C [Concomitant]
  5. BICALOTAMINE [Concomitant]
  6. FERROUS SULFATE [Concomitant]
  7. FLUNISOLIDE [Concomitant]
  8. NEURONTIN [Concomitant]
  9. CLARITIN [Concomitant]
  10. MOMETASONE [Concomitant]
  11. OMEPRAZOLE [Concomitant]
  12. PROPANOLOL [Concomitant]
  13. ZOLOFT [Concomitant]
  14. ZOCOR [Concomitant]
  15. TRAZODONE [Concomitant]
  16. CAPSAICIN [Concomitant]

REACTIONS (7)
  - Anaemia [None]
  - Occult blood negative [None]
  - Oesophageal candidiasis [None]
  - Gastritis atrophic [None]
  - International normalised ratio increased [None]
  - Haemolytic anaemia [None]
  - Unevaluable event [None]
